FAERS Safety Report 8596342-9 (Version None)
Quarter: 2012Q3

REPORT INFORMATION
  Report Type: 
  Country: None (occurrence: None)
  Receive Date: 20120815
  Receipt Date: 20120803
  Transmission Date: 20120928
  Serious: Yes (Hospitalization)
  Sender: FDA-Public Use
  Company Number: AU-GILEAD-2012-0059275

PATIENT
  Sex: Female

DRUGS (13)
  1. ACIMAX [Concomitant]
     Indication: GASTROOESOPHAGEAL REFLUX DISEASE
     Dosage: 20 MG, QD
     Route: 048
  2. COQ-10 [Concomitant]
     Indication: PROPHYLAXIS
     Dosage: 75 MG, QD
     Route: 048
  3. FLUTICASONE PROPIONATE/SALMETEROL [Concomitant]
     Indication: BRONCHIECTASIS
     Dosage: 275 MG, BID
     Route: 045
  4. LIPITOR [Concomitant]
     Indication: HYPERCHOLESTEROLAEMIA
     Dosage: 20 MG, QD
     Route: 048
  5. BISOLVON [Concomitant]
     Indication: PROPHYLAXIS
     Dosage: 8 MG, PRN
     Route: 048
  6. VITAMIN D [Concomitant]
     Indication: PROPHYLAXIS
     Dosage: 20 ?G, QD
     Route: 048
  7. MAGNESIUM [Concomitant]
     Indication: PROPHYLAXIS
     Dosage: 500 MG, BID
     Route: 048
  8. AZTREONAM [Suspect]
     Indication: BRONCHIECTASIS
     Dosage: 75 MG, TID
     Route: 048
     Dates: start: 20120713, end: 20120727
  9. CARTIA                             /00002701/ [Concomitant]
     Indication: PROPHYLAXIS
     Dosage: 100 MG, QD
     Route: 048
  10. GREEN LIPPED MUSSEL [Concomitant]
     Indication: PROPHYLAXIS
     Dosage: 50 MG, BID
     Route: 048
  11. SPIRIVA [Concomitant]
     Indication: BRONCHIECTASIS
     Dosage: 18 ?G, QD
     Route: 045
  12. AVAPRO [Concomitant]
     Indication: HYPERTENSION
     Dosage: 150 MG, QD
     Route: 048
  13. ERYTHROMYCIN [Concomitant]
     Indication: LOCALISED INFECTION
     Dosage: 800 MG, BID
     Route: 048
     Dates: start: 20120718, end: 20120723

REACTIONS (1)
  - LOWER RESPIRATORY TRACT INFECTION [None]
